FAERS Safety Report 25745923 (Version 1)
Quarter: 2025Q3

REPORT INFORMATION
  Report Type: Spontaneous
  Country: US (occurrence: US)
  Receive Date: 20250901
  Receipt Date: 20250901
  Transmission Date: 20251020
  Serious: No
  Sender: AUROBINDO
  Company Number: US-AUROBINDO-AUR-APL-2024-054436

PATIENT
  Age: 79 Year
  Sex: Female

DRUGS (1)
  1. METFORMIN HYDROCHLORIDE [Suspect]
     Active Substance: METFORMIN HYDROCHLORIDE
     Indication: Diabetes mellitus
     Route: 048

REACTIONS (4)
  - Rash [Recovered/Resolved]
  - Pruritus [Recovered/Resolved]
  - Papule [Recovered/Resolved]
  - Prescribed overdose [Unknown]
